FAERS Safety Report 20278488 (Version 1)
Quarter: 2022Q1

REPORT INFORMATION
  Report Type: Spontaneous
  Country: US (occurrence: US)
  Receive Date: 20220103
  Receipt Date: 20220103
  Transmission Date: 20220423
  Serious: No
  Sender: FDA-Public Use
  Company Number: US-SA-SAC20211231000333

PATIENT
  Age: 47 Year
  Sex: Female

DRUGS (1)
  1. DUPIXENT [Suspect]
     Active Substance: DUPILUMAB
     Indication: Perioral dermatitis
     Dosage: UNK UNK, QOW
     Route: 058
     Dates: start: 20210602

REACTIONS (3)
  - Injection site pain [Unknown]
  - Injection site inflammation [Unknown]
  - Product use in unapproved indication [Unknown]
